FAERS Safety Report 8422050-0 (Version None)
Quarter: 2012Q2

REPORT INFORMATION
  Report Type: 
  Country: None (occurrence: None)
  Receive Date: 20120608
  Receipt Date: 20120601
  Transmission Date: 20120825
  Serious: Yes (Death)
  Sender: FDA-Public Use
  Company Number: JP-SANOFI-AVENTIS-2012SA040396

PATIENT
  Age: 75 Year
  Sex: Male

DRUGS (1)
  1. TAXOTERE [Suspect]
     Indication: PROSTATE CANCER
     Dosage: FREQUENCY: EVERY 4 WEEKS.
     Route: 042

REACTIONS (1)
  - INTERSTITIAL LUNG DISEASE [None]
